FAERS Safety Report 24057095 (Version 2)
Quarter: 2024Q3

REPORT INFORMATION
  Report Type: Report from Study
  Country: US (occurrence: US)
  Receive Date: 20240706
  Receipt Date: 20240725
  Transmission Date: 20241016
  Serious: No
  Sender: AMGEN
  Company Number: US-AMGEN-USASP2024130585

PATIENT
  Age: 73 Year
  Sex: Female
  Weight: 99.79 kg

DRUGS (6)
  1. TEPEZZA [Suspect]
     Active Substance: TEPROTUMUMAB-TRBW
     Indication: Endocrine ophthalmopathy
     Dosage: UNK, FIRST ROUND
     Route: 042
  2. TEPEZZA [Suspect]
     Active Substance: TEPROTUMUMAB-TRBW
     Indication: Toxic goitre
     Dosage: 500 MILLIGRAM, SECOND ROUND
     Route: 042
  3. TEPEZZA [Suspect]
     Active Substance: TEPROTUMUMAB-TRBW
     Dosage: 880 MILLIGRAM, Q3WK, FIRST INFUSION
     Route: 042
     Dates: start: 20240513
  4. TEPEZZA [Suspect]
     Active Substance: TEPROTUMUMAB-TRBW
     Dosage: 1760 MILLIGRAM, Q3WK ( THIRD INFUSION) ((1760 MG 20MG/KG FOR INFUSION 2- 8))
     Route: 042
     Dates: start: 20240624
  5. SODIUM CHLORIDE [Concomitant]
     Active Substance: SODIUM CHLORIDE
     Indication: Product used for unknown indication
  6. STERILE WATER [Concomitant]
     Active Substance: WATER
     Indication: Product used for unknown indication

REACTIONS (6)
  - Dizziness [Unknown]
  - Feeling hot [Unknown]
  - Asthenia [Unknown]
  - Muscle spasms [Unknown]
  - Diarrhoea [Unknown]
  - Off label use [Unknown]

NARRATIVE: CASE EVENT DATE: 20240624
